FAERS Safety Report 8429091-8 (Version None)
Quarter: 2012Q2

REPORT INFORMATION
  Report Type: 
  Country: None (occurrence: None)
  Receive Date: 20120612
  Receipt Date: 20120608
  Transmission Date: 20120825
  Serious: No
  Sender: FDA-Public Use
  Company Number: US-BAYER-2012-057402

PATIENT
  Sex: Female

DRUGS (1)
  1. MIRENA [Suspect]
     Indication: MENORRHAGIA
     Dosage: 20 MCG/24HR, CONT
     Route: 015
     Dates: start: 20111019

REACTIONS (10)
  - ABDOMINAL DISTENSION [None]
  - IRRITABILITY [None]
  - DIZZINESS [None]
  - DYSPNOEA [None]
  - CHEST PAIN [None]
  - LETHARGY [None]
  - HEADACHE [None]
  - NAUSEA [None]
  - PRURITUS [None]
  - RASH [None]
